FAERS Safety Report 6135036-6 (Version None)
Quarter: 2009Q1

REPORT INFORMATION
  Report Type: 
  Country: None (occurrence: None)
  Receive Date: 20090327
  Receipt Date: 20090317
  Transmission Date: 20090719
  Serious: Yes (Hospitalization, Other)
  Sender: FDA-Public Use
  Company Number: US-PFIZER INC-2005075639

PATIENT
  Sex: Female
  Weight: 53.515 kg

DRUGS (7)
  1. PROVERA [Suspect]
     Indication: HORMONE REPLACEMENT THERAPY
     Dosage: UNK
     Route: 065
     Dates: start: 19810101, end: 19990101
  2. PROVERA [Suspect]
     Indication: MENOPAUSAL SYMPTOMS
  3. PREMARIN [Suspect]
     Indication: HORMONE REPLACEMENT THERAPY
     Route: 065
     Dates: start: 19860101, end: 19990101
  4. PREMARIN [Suspect]
     Indication: MENOPAUSAL SYMPTOMS
  5. ALPRAZOLAM [Concomitant]
     Indication: ANXIETY
     Dosage: 0.5 MG, UNK
     Dates: start: 19900101
  6. IBUPROFEN [Concomitant]
     Indication: SPINAL COLUMN STENOSIS
     Dosage: 600 MG, UNK
     Dates: start: 19970101
  7. TRIAMTERENE AND HYDROCHLOROTHIAZIDE [Concomitant]
     Indication: HYPERTENSION
     Dosage: 37.5MG/25CP
     Dates: start: 19970101, end: 20030101

REACTIONS (1)
  - BREAST CANCER [None]
